FAERS Safety Report 9505840 (Version 1)
Quarter: 2013Q1

REPORT INFORMATION
  Report Type: Spontaneous
  Country: US (occurrence: None)
  Receive Date: 20130226
  Receipt Date: 20130226
  Transmission Date: 20140127
  Serious: Yes (Other)
  Sender: FDA-Public Use
  Company Number: PHEH2012US008193

PATIENT
  Sex: Male

DRUGS (1)
  1. TOBI [Suspect]
     Route: 055
     Dates: start: 20120222

REACTIONS (1)
  - Pneumonia [None]
